FAERS Safety Report 8020516-9 (Version None)
Quarter: 2012Q1

REPORT INFORMATION
  Report Type: 
  Country: None (occurrence: None)
  Receive Date: 20120103
  Receipt Date: 20111228
  Transmission Date: 20120608
  Serious: Yes (Other)
  Sender: FDA-Public Use
  Company Number: JP-ROCHE-783106

PATIENT
  Sex: Female

DRUGS (13)
  1. FOLIC ACID [Concomitant]
     Dosage: DOSE FORM: PERORAL AGENT
     Route: 048
  2. PREDNISOLONE [Concomitant]
     Dosage: DOSE FORM: PERORAL AGENT
     Route: 048
  3. ISONIAZID [Concomitant]
     Dosage: DOSE FORM: PERORAL AGENT
     Route: 048
  4. ACTEMRA [Suspect]
     Route: 041
     Dates: start: 20100203, end: 20101201
  5. ACTEMRA [Suspect]
     Indication: RHEUMATOID ARTHRITIS
     Route: 041
     Dates: start: 20090212, end: 20090413
  6. ACTEMRA [Suspect]
     Route: 041
     Dates: start: 20090518, end: 20090518
  7. ACTEMRA [Suspect]
     Route: 041
     Dates: start: 20090615, end: 20090615
  8. ACTEMRA [Suspect]
     Route: 041
     Dates: start: 20090713, end: 20090713
  9. METHOTREXATE SODIUM [Suspect]
     Indication: RHEUMATOID ARTHRITIS
     Route: 048
     Dates: start: 20081213, end: 20101221
  10. ACTEMRA [Suspect]
     Route: 041
     Dates: start: 20090811, end: 20091201
  11. PREDNISOLONE [Concomitant]
     Route: 048
  12. ACTEMRA [Suspect]
     Route: 041
     Dates: start: 20100106, end: 20100106
  13. ETODOLAC [Concomitant]
     Dosage: DRUG: RAIPECK(ETODOLAC)
     Route: 048

REACTIONS (1)
  - CELL MARKER INCREASED [None]
